FAERS Safety Report 22383336 (Version 1)
Quarter: 2023Q2

REPORT INFORMATION
  Report Type: Spontaneous
  Country: US (occurrence: None)
  Receive Date: 20230526
  Receipt Date: 20230526
  Transmission Date: 20230721
  Serious: Yes (Hospitalization, Other)
  Sender: FDA-Public Use
  Company Number: None

PATIENT
  Age: 32 Year
  Sex: Female
  Weight: 73 kg

DRUGS (1)
  1. VENOFER [Suspect]
     Active Substance: IRON SUCROSE
     Indication: Iron deficiency anaemia
     Dosage: OTHER FREQUENCY : EVERY TREATMENT;?
     Route: 040
     Dates: start: 20230515, end: 20230517

REACTIONS (5)
  - Dialysis [None]
  - Dyspnoea [None]
  - Heart rate increased [None]
  - Blood pressure diastolic increased [None]
  - Drug hypersensitivity [None]

NARRATIVE: CASE EVENT DATE: 20230517
